FAERS Safety Report 9039671 (Version 1)
Quarter: 2013Q1

REPORT INFORMATION
  Report Type: Report from Study
  Country: US (occurrence: US)
  Receive Date: 20130129
  Receipt Date: 20130129
  Transmission Date: 20140127
  Serious: Yes (Hospitalization, Other)
  Sender: FDA-Public Use
  Company Number: US-ABBOTT-12P-163-0929966-00

PATIENT
  Age: 65 Year
  Sex: Male
  Weight: 115.77 kg

DRUGS (21)
  1. HUMIRA 40 MG/0.8 ML PEN [Suspect]
     Indication: PSORIASIS
     Dates: start: 200906
  2. PRILOSEC [Concomitant]
     Indication: PRODUCT USED FOR UNKNOWN INDICATION
  3. SINGULAIR [Concomitant]
     Indication: CHRONIC OBSTRUCTIVE PULMONARY DISEASE
  4. ADVAIR [Concomitant]
     Indication: CHRONIC OBSTRUCTIVE PULMONARY DISEASE
  5. NASONEX [Concomitant]
     Indication: CHRONIC OBSTRUCTIVE PULMONARY DISEASE
  6. ALBUTEROL [Concomitant]
     Indication: CHRONIC OBSTRUCTIVE PULMONARY DISEASE
  7. ALPHAGAN [Concomitant]
     Indication: GLAUCOMA
  8. CRESTOR [Concomitant]
     Indication: BLOOD CHOLESTEROL INCREASED
  9. CRESTOR [Concomitant]
     Indication: BLOOD TRIGLYCERIDES INCREASED
  10. NIASPAN [Concomitant]
     Indication: BLOOD CHOLESTEROL INCREASED
  11. NIASPAN [Concomitant]
     Indication: BLOOD TRIGLYCERIDES INCREASED
  12. ISOSORBIDE [Concomitant]
     Indication: PRODUCT USED FOR UNKNOWN INDICATION
  13. ASPIRIN [Concomitant]
     Indication: PRODUCT USED FOR UNKNOWN INDICATION
  14. FLEXERIL [Concomitant]
     Indication: BACK PAIN
  15. HYDROCODONE [Concomitant]
     Indication: BACK PAIN
     Dosage: 5/500 MG PRN
  16. VALIUM [Concomitant]
     Indication: BACK PAIN
  17. LOTREL [Concomitant]
     Indication: HYPERTENSION
  18. TOPROL [Concomitant]
     Indication: HYPERTENSION
  19. POTASSIUM [Concomitant]
     Indication: HYPERTENSION
  20. VITAMIN D [Concomitant]
     Indication: VITAMIN SUPPLEMENTATION
  21. VITAMIN B [Concomitant]
     Indication: VITAMIN SUPPLEMENTATION

REACTIONS (2)
  - Renal cancer [Recovering/Resolving]
  - Abdominal pain [Unknown]
